FAERS Safety Report 19141271 (Version 2)
Quarter: 2021Q2

REPORT INFORMATION
  Report Type: Report from Study
  Country: US (occurrence: US)
  Receive Date: 20210415
  Receipt Date: 20210513
  Transmission Date: 20210717
  Serious: No
  Sender: FDA-Public Use
  Company Number: US-SA-2021SA123048

PATIENT
  Age: 41 Year
  Sex: Male

DRUGS (5)
  1. CLOBETASOL [Concomitant]
     Active Substance: CLOBETASOL
     Dosage: UNK
     Route: 065
  2. DUPIXENT [Suspect]
     Active Substance: DUPILUMAB
     Indication: DERMATITIS ATOPIC
     Dosage: 1 DF, 1X
     Route: 058
     Dates: start: 20210414, end: 20210414
  3. DUPIXENT [Suspect]
     Active Substance: DUPILUMAB
     Dosage: 300 MG, QOW
     Route: 058
  4. TACROLIMUS. [Concomitant]
     Active Substance: TACROLIMUS
     Dosage: UNK
     Route: 065
  5. TRIAMCINOLONE [Concomitant]
     Active Substance: TRIAMCINOLONE
     Dosage: UNK
     Route: 065

REACTIONS (2)
  - Rash [Unknown]
  - Incorrect dose administered [Unknown]

NARRATIVE: CASE EVENT DATE: 20210414
